FAERS Safety Report 8793909 (Version 1)
Quarter: 2012Q4

REPORT INFORMATION
  Report Type: 
  Country: US (occurrence: US)
  Receive Date: 20120918
  Receipt Date: 20120918
  Transmission Date: 20130627
  Serious: Yes (Disabling)
  Sender: FDA-Public Use
  Company Number: US-009507513-1209USA003359

PATIENT

DRUGS (4)
  1. ISENTRESS [Suspect]
     Dosage: 400 mg, bid
     Route: 048
  2. TRUVADA [Suspect]
     Dosage: 1 DF, qd
     Route: 048
  3. PREZISTA [Concomitant]
     Dosage: 600 mg, qd
     Route: 048
  4. NORVIR [Concomitant]
     Dosage: 100 mg, qd
     Route: 048

REACTIONS (5)
  - Osteopenia [Unknown]
  - Night sweats [Unknown]
  - Erectile dysfunction [Unknown]
  - Pain in extremity [Unknown]
  - Insomnia [Unknown]
